FAERS Safety Report 5337537-7 (Version None)
Quarter: 2007Q2

REPORT INFORMATION
  Report Type: 
  Country: None (occurrence: None)
  Receive Date: 20070309
  Receipt Date: 20060803
  Transmission Date: 20071010
  Serious: Yes (Hospitalization, Other)
  Sender: FDA-Public Use
  Company Number: US200607004572

PATIENT
  Age: 78 Year
  Sex: Female
  Weight: 69.8 kg

DRUGS (6)
  1. GEMCITABINE HCL [Suspect]
     Indication: BREAST CANCER METASTATIC
     Dosage: 1500 MG, WEEKLY, (1/W), INTRAVENOUS
     Route: 042
     Dates: start: 20060424, end: 20060710
  2. VERAPAMIL [Concomitant]
  3. COUMADIN [Concomitant]
  4. CALCIUM (CALCIUM) [Concomitant]
  5. PHENERGAN [Concomitant]
  6. ATIVAN [Concomitant]

REACTIONS (6)
  - ANOREXIA [None]
  - BREAST CELLULITIS [None]
  - BRONCHITIS [None]
  - DEPRESSION [None]
  - DYSPNOEA EXERTIONAL [None]
  - PULMONARY FIBROSIS [None]
